FAERS Safety Report 12158019 (Version 1)
Quarter: 2016Q1

REPORT INFORMATION
  Report Type: Spontaneous
  Country: US (occurrence: US)
  Receive Date: 20160308
  Receipt Date: 20160308
  Transmission Date: 20160526
  Serious: No
  Sender: FDA-Public Use
  Company Number: US-JNJFOC-20150120883

PATIENT
  Sex: Male
  Weight: 63 kg

DRUGS (1)
  1. IMBRUVICA [Suspect]
     Active Substance: IBRUTINIB
     Indication: MANTLE CELL LYMPHOMA
     Route: 048
     Dates: start: 20140819

REACTIONS (2)
  - Agitation [Unknown]
  - Irritability [Unknown]

NARRATIVE: CASE EVENT DATE: 2014
